FAERS Safety Report 17091063 (Version 1)
Quarter: 2019Q4

REPORT INFORMATION
  Report Type: Spontaneous
  Country: CA (occurrence: CA)
  Receive Date: 20191129
  Receipt Date: 20191129
  Transmission Date: 20200122
  Serious: Yes (Other)
  Sender: FDA-Public Use
  Company Number: CA-AUROBINDO-AUR-APL-2019-076014

PATIENT
  Age: 22 Year
  Sex: Male
  Weight: 88.4 kg

DRUGS (1)
  1. QUETIAPINE FILM-COATED TABLET [Suspect]
     Active Substance: QUETIAPINE
     Indication: PRODUCT USED FOR UNKNOWN INDICATION
     Dosage: 200 MILLIGRAM, ONCE A DAY
     Route: 065

REACTIONS (6)
  - Head discomfort [Recovered/Resolved]
  - Hypoaesthesia [Recovered/Resolved]
  - Hallucination, visual [Recovered/Resolved]
  - Psychotic disorder [Recovered/Resolved]
  - Product substitution issue [Recovered/Resolved]
  - Insomnia [Recovered/Resolved]
